FAERS Safety Report 24746998 (Version 1)
Quarter: 2024Q4

REPORT INFORMATION
  Report Type: Spontaneous
  Country: US (occurrence: US)
  Receive Date: 20241218
  Receipt Date: 20241218
  Transmission Date: 20250114
  Serious: No
  Sender: UROGEN PHARMA
  Company Number: US-UROGEN PHARMA LTD.-2024-UGN-000156

PATIENT

DRUGS (3)
  1. JELMYTO [Suspect]
     Active Substance: MITOMYCIN
     Indication: Transitional cell cancer of the renal pelvis and ureter
     Dosage: 10 MILLILITER (ANTEGRADE INSTILLATION)
     Dates: start: 20241003, end: 20241003
  2. JELMYTO [Suspect]
     Active Substance: MITOMYCIN
     Dosage: 10 MILLILITER, (ANTEGRADE INSTILLATION)
     Dates: start: 20241010, end: 20241010
  3. JELMYTO [Suspect]
     Active Substance: MITOMYCIN
     Dosage: 10 MILLILITER, (ANTEGRADE INSTILLATION)
     Dates: start: 20241024, end: 20241024

REACTIONS (3)
  - Pain [Unknown]
  - Pain [Recovered/Resolved]
  - Pain [Unknown]

NARRATIVE: CASE EVENT DATE: 20241003
